FAERS Safety Report 4741492-8 (Version None)
Quarter: 2005Q3

REPORT INFORMATION
  Report Type: 
  Country: None (occurrence: None)
  Receive Date: 20050810
  Receipt Date: 20050613
  Transmission Date: 20060218
  Serious: No
  Sender: FDA-Public Use
  Company Number: IT-AMGEN-UK138700

PATIENT
  Sex: Female

DRUGS (1)
  1. KINERET [Suspect]
     Indication: JUVENILE ARTHRITIS
     Route: 058
     Dates: start: 20030224, end: 20030312

REACTIONS (12)
  - FIBRIN DEGRADATION PRODUCTS [None]
  - HEPATIC ENZYME INCREASED [None]
  - HISTIOCYTOSIS HAEMATOPHAGIC [None]
  - HYPERTRIGLYCERIDAEMIA [None]
  - PLATELET COUNT DECREASED [None]
  - PYREXIA [None]
  - RED BLOOD CELL SEDIMENTATION RATE ABNORMAL [None]
  - RED BLOOD CELL SEDIMENTATION RATE DECREASED [None]
  - SERUM FERRITIN INCREASED [None]
  - SKIN LESION [None]
  - WEBER-CHRISTIAN DISEASE [None]
  - WHITE BLOOD CELL COUNT DECREASED [None]
